FAERS Safety Report 6287685-2 (Version None)
Quarter: 2009Q3

REPORT INFORMATION
  Report Type: 
  Country: None (occurrence: None)
  Receive Date: 20090717
  Receipt Date: 20090115
  Transmission Date: 20100115
  Serious: Yes (Hospitalization)
  Sender: FDA-Public Use
  Company Number: 2009SP000992

PATIENT
  Age: 60 Year
  Sex: Male

DRUGS (1)
  1. INTEGRILIN [Suspect]
     Indication: DRUG USE FOR UNKNOWN INDICATION

REACTIONS (2)
  - PULMONARY HAEMORRHAGE [None]
  - THROMBOCYTOPENIA [None]
